FAERS Safety Report 8113565 (Version 4)
Quarter: 2014Q1

REPORT INFORMATION
  Report Type: Spontaneous
  Country: US (occurrence: US)
  Receive Date: 20110830
  Receipt Date: 20140113
  Transmission Date: 20141002
  Serious: Yes (Hospitalization, Other)
  Sender: FDA-Public Use
  Company Number: US-BAYER-2011-075227

PATIENT
  Age: 22 Year
  Sex: Female
  Weight: 86.17 kg

DRUGS (2)
  1. YAZ [Suspect]
     Indication: CONTRACEPTION
     Dosage: UNK
     Dates: start: 2006, end: 200908
  2. METFORMIN [Concomitant]

REACTIONS (4)
  - Gallbladder injury [Unknown]
  - Cholecystitis chronic [None]
  - Injury [Unknown]
  - Pain [Unknown]
